FAERS Safety Report 9990880 (Version 1)
Quarter: 2014Q1

REPORT INFORMATION
  Report Type: Spontaneous
  Country: US (occurrence: None)
  Receive Date: 20140307
  Receipt Date: 20140307
  Transmission Date: 20141002
  Serious: Yes (Other)
  Sender: FDA-Public Use
  Company Number: None

PATIENT
  Age: 55 Year
  Sex: Female
  Weight: 77.6 kg

DRUGS (9)
  1. SIMVASTATIN [Suspect]
     Indication: HYPERCHOLESTEROLAEMIA
     Route: 048
     Dates: start: 20130630
  2. CITALOPRAM [Concomitant]
  3. CLOZAPINE [Concomitant]
  4. CO [Concomitant]
  5. FERROUS SULFATE [Concomitant]
  6. LORAZEPAM [Concomitant]
  7. METOPROLOL [Concomitant]
  8. OXYBUTYNIN [Concomitant]
  9. MIRALAX [Concomitant]

REACTIONS (1)
  - Aspartate aminotransferase increased [None]
